FAERS Safety Report 24893315 (Version 1)
Quarter: 2025Q1

REPORT INFORMATION
  Report Type: Report from Study
  Country: IT (occurrence: IT)
  Receive Date: 20250128
  Receipt Date: 20250128
  Transmission Date: 20250408
  Serious: Yes (Hospitalization)
  Sender: UCB
  Company Number: IT-UCBSA-2025004423

PATIENT

DRUGS (3)
  1. BIMEKIZUMAB [Suspect]
     Active Substance: BIMEKIZUMAB
     Indication: Psoriasis
  2. BIMEKIZUMAB [Suspect]
     Active Substance: BIMEKIZUMAB
     Indication: Chronic kidney disease
  3. BIMEKIZUMAB [Suspect]
     Active Substance: BIMEKIZUMAB
     Indication: Off label use

REACTIONS (9)
  - Pneumonia [Unknown]
  - Urosepsis [Unknown]
  - Sepsis [Unknown]
  - Candida infection [Unknown]
  - Urticaria [Unknown]
  - Pyrexia [Unknown]
  - Aphthous ulcer [Unknown]
  - Vasculitis [Unknown]
  - Off label use [Unknown]
